FAERS Safety Report 20861106 (Version 2)
Quarter: 2022Q2

REPORT INFORMATION
  Report Type: Spontaneous
  Country: US (occurrence: US)
  Receive Date: 20220523
  Receipt Date: 20220603
  Transmission Date: 20220720
  Serious: No
  Sender: FDA-Public Use
  Company Number: US-CATALYST PHARMACEUTICALS, INC-2021CAT00517

PATIENT
  Age: 77 Year
  Sex: Male
  Weight: 77.098 kg

DRUGS (10)
  1. FIRDAPSE [Suspect]
     Active Substance: AMIFAMPRIDINE PHOSPHATE
     Indication: Myasthenic syndrome
     Dosage: 20 MG, 3X/DAY
     Route: 048
     Dates: start: 202110
  2. FIRDAPSE [Suspect]
     Active Substance: AMIFAMPRIDINE PHOSPHATE
     Dosage: 20 MG, 3X/DAY
     Route: 048
  3. RADIATION THERAPY [Suspect]
     Active Substance: RADIATION THERAPY
  4. UNSPECIFIED INGREDIENT [Concomitant]
     Active Substance: UNSPECIFIED INGREDIENT
     Dosage: UNK, 3X/WEEK
     Dates: start: 20211101
  5. PROCHLORPERAZINE [Concomitant]
     Active Substance: PROCHLORPERAZINE
  6. METOCLOPRAMIDE [Concomitant]
     Active Substance: METOCLOPRAMIDE
  7. ESOMETRA [Concomitant]
     Dosage: 40 MG
  8. FOLIC ACID [Concomitant]
     Active Substance: FOLIC ACID
  9. ROPINIROLE [Concomitant]
     Active Substance: ROPINIROLE
     Dosage: 0.25 UNK, DAILY
  10. MEGESTROL [Concomitant]
     Active Substance: MEGESTROL
     Dosage: 10 ML

REACTIONS (1)
  - Nausea [Recovering/Resolving]

NARRATIVE: CASE EVENT DATE: 20220201
